FAERS Safety Report 4743721-3 (Version None)
Quarter: 2005Q3

REPORT INFORMATION
  Report Type: 
  Country: None (occurrence: None)
  Receive Date: 20050812
  Receipt Date: 20050805
  Transmission Date: 20060218
  Serious: Yes (Death, Life-Threatening, Hospitalization)
  Sender: FDA-Public Use
  Company Number: 12829537

PATIENT
  Age: 43 Year
  Sex: Female

DRUGS (14)
  1. LAMIVUDINE [Suspect]
     Indication: HIV INFECTION
     Dosage: 150MG TWICE PER DAY
     Route: 048
     Dates: start: 20041004, end: 20050103
  2. DIDANOSINE [Suspect]
     Dosage: 400MG PER DAY
     Route: 048
     Dates: start: 20041004, end: 20050103
  3. TENOFOVIR [Suspect]
     Indication: HIV INFECTION
     Dosage: 300MG PER DAY
     Route: 048
     Dates: start: 20041004, end: 20050103
  4. KALETRA [Suspect]
     Indication: HIV INFECTION
     Dosage: 1.6G TWICE PER DAY
     Route: 048
     Dates: start: 20031020, end: 20050103
  5. CAPRAVIRINE [Suspect]
     Indication: HIV INFECTION
     Dosage: 700MG TWICE PER DAY
     Route: 048
     Dates: start: 20041004, end: 20050103
  6. PREDNISONE [Concomitant]
     Dates: start: 20040419
  7. THEOPHYLLINE [Concomitant]
     Dates: start: 20031119, end: 20050103
  8. VITAMINS [Concomitant]
     Dates: start: 20040127, end: 20050103
  9. METFORMIN HCL [Concomitant]
     Dates: start: 20041129
  10. LOPERAMIDE HCL [Concomitant]
     Dates: start: 20040112, end: 20050103
  11. BACTRIM [Concomitant]
     Dates: start: 19990101, end: 20050111
  12. SODIUM CHLORIDE [Concomitant]
     Dates: start: 20050103, end: 20050120
  13. ALBUTEROL SULFATE HFA [Concomitant]
     Dates: start: 20040501, end: 20050103
  14. BUDESONIDE [Concomitant]
     Route: 055
     Dates: start: 20030101, end: 20050103

REACTIONS (30)
  - ABDOMINAL PAIN [None]
  - ANAEMIA [None]
  - ANOREXIA [None]
  - ANURIA [None]
  - APHASIA [None]
  - ASCITES [None]
  - ASTHENIA [None]
  - CATHETER SITE INFECTION [None]
  - DIARRHOEA [None]
  - DISORIENTATION [None]
  - DRUG HYPERSENSITIVITY [None]
  - EMPHYSEMA [None]
  - HAEMATURIA [None]
  - HAEMODIALYSIS [None]
  - HEMIPARESIS [None]
  - HEPATORENAL SYNDROME [None]
  - HYPOXIA [None]
  - JAUNDICE [None]
  - METABOLIC ACIDOSIS [None]
  - NAUSEA [None]
  - OEDEMA PERIPHERAL [None]
  - OLIGURIA [None]
  - PYREXIA [None]
  - RALES [None]
  - RENAL FAILURE [None]
  - RENAL TUBULAR NECROSIS [None]
  - SEPSIS [None]
  - TUBULOINTERSTITIAL NEPHRITIS [None]
  - VOMITING [None]
  - WEIGHT DECREASED [None]
